FAERS Safety Report 10497343 (Version 1)
Quarter: 2014Q4

REPORT INFORMATION
  Report Type: Spontaneous
  Country: CH (occurrence: CH)
  Receive Date: 20141006
  Receipt Date: 20141006
  Transmission Date: 20150528
  Serious: Yes (Hospitalization)
  Sender: FDA-Public Use
  Company Number: CH-JNJFOC-20140923241

PATIENT
  Age: 29 Year
  Sex: Female

DRUGS (2)
  1. REGAINE 2% LOESUNG [Suspect]
     Active Substance: MINOXIDIL
     Route: 061
  2. REGAINE 2% LOESUNG [Suspect]
     Active Substance: MINOXIDIL
     Indication: ALOPECIA
     Route: 061
     Dates: start: 20140904

REACTIONS (4)
  - Dizziness [Unknown]
  - Vertigo [Unknown]
  - Palpitations [Unknown]
  - Chest pain [Unknown]

NARRATIVE: CASE EVENT DATE: 20140904
